FAERS Safety Report 5234542-6 (Version None)
Quarter: 2007Q1

REPORT INFORMATION
  Report Type: 
  Country: None (occurrence: None)
  Receive Date: 20070209
  Receipt Date: 20070129
  Transmission Date: 20070707
  Serious: Yes (Other)
  Sender: FDA-Public Use
  Company Number: CA-ELI_LILLY_AND_COMPANY-CA200701006294

PATIENT
  Age: 14 Year
  Sex: Male

DRUGS (5)
  1. STRATTERA [Suspect]
     Dosage: 18 MG, UNK
     Dates: start: 20060101, end: 20060101
  2. STRATTERA [Suspect]
     Dosage: 25 MG, UNK
     Dates: start: 20060101
  3. RIVOTRIL [Concomitant]
     Dosage: 2 MG, 3/D
  4. WELLBUTRIN XL [Concomitant]
     Dosage: 300 MG, UNK
  5. EFFEXOR [Concomitant]
     Dosage: 150 MG, 2/D

REACTIONS (2)
  - SUICIDAL IDEATION [None]
  - SUICIDE ATTEMPT [None]
